FAERS Safety Report 4601097-6 (Version None)
Quarter: 2005Q1

REPORT INFORMATION
  Report Type: 
  Country: None (occurrence: None)
  Receive Date: 20050304
  Receipt Date: 20050304
  Transmission Date: 20050727
  Serious: Yes (Death)
  Sender: FDA-Public Use
  Company Number: None

PATIENT
  Age: 7 Year
  Sex: Female
  Weight: 21 kg

DRUGS (13)
  1. ENBREL [Suspect]
     Indication: GRAFT VERSUS HOST DISEASE
     Dosage: 9 MG ONE TIME SUBCUTANEOUS
     Route: 058
     Dates: start: 20030408, end: 20030408
  2. SIMULECT [Suspect]
     Indication: GRAFT VERSUS HOST DISEASE
     Dosage: 10 MG Q 3 DAYS X 2 INTRAVENOUS
     Route: 042
     Dates: start: 20030401, end: 20030404
  3. TPN [Concomitant]
  4. CYCLOSPORINE [Concomitant]
  5. NAFCILLIN [Concomitant]
  6. DILAUDID [Concomitant]
  7. ITRACONAZOLE [Concomitant]
  8. CEFEPIME [Concomitant]
  9. MEDROL [Concomitant]
  10. THYMOGLOBULIN [Concomitant]
  11. BUSULFAN [Concomitant]
  12. CYTARABINE [Concomitant]
  13. CYCLOPHOSPHAMIDE [Concomitant]

REACTIONS (3)
  - ACUTE RESPIRATORY DISTRESS SYNDROME [None]
  - PNEUMONITIS [None]
  - PULMONARY FIBROSIS [None]
